FAERS Safety Report 6811540-X (Version None)
Quarter: 2010Q3

REPORT INFORMATION
  Report Type: 
  Country: None (occurrence: None)
  Receive Date: 20100701
  Receipt Date: 20100624
  Transmission Date: 20110219
  Serious: Yes (Hospitalization)
  Sender: FDA-Public Use
  Company Number: US-BIOGENIDEC-2009BI039339

PATIENT
  Age: 45 Year
  Sex: Male
  Weight: 89 kg

DRUGS (6)
  1. TYSABRI [Suspect]
     Indication: MULTIPLE SCLEROSIS
     Route: 042
     Dates: start: 20090609, end: 20091027
  2. AMBIEN [Concomitant]
     Indication: SLEEP DISORDER
     Dates: start: 20080101
  3. BACLOFEN [Concomitant]
     Indication: MUSCLE SPASTICITY
     Dates: start: 20070101
  4. TRAZODONE HYDROCHLORIDE [Concomitant]
     Indication: SLEEP DISORDER
     Dates: start: 20090101
  5. XANAX [Concomitant]
     Indication: ANXIETY
     Dates: start: 20090902
  6. PROVIGIL [Concomitant]
     Indication: FATIGUE
     Dates: start: 20090902

REACTIONS (1)
  - OVERDOSE [None]
